FAERS Safety Report 4583701-4 (Version None)
Quarter: 2005Q1

REPORT INFORMATION
  Report Type: 
  Country: None (occurrence: None)
  Receive Date: 20050211
  Receipt Date: 20050203
  Transmission Date: 20050727
  Serious: Yes (Hospitalization)
  Sender: FDA-Public Use
  Company Number: 028-20785-05020074

PATIENT
  Age: 67 Year
  Sex: Female

DRUGS (3)
  1. THALOMID [Suspect]
     Indication: MULTIPLE MYELOMA
     Dosage: 150 MG, QHS, ORAL
     Route: 048
     Dates: start: 20041118, end: 20041212
  2. DEXAMETHASONE [Suspect]
     Indication: MULTIPLE MYELOMA
     Dosage: 40 MG, X4 DAYS EVERY 2 WEEKS
     Dates: start: 20041021, end: 20041212
  3. FRAGMIN (HEPARIN-F-RACTION, SODIUM SALT) (UNKNOWN) [Concomitant]

REACTIONS (10)
  - ASTHENIA [None]
  - DRUG INTOLERANCE [None]
  - HAEMOGLOBIN DECREASED [None]
  - MOTOR DYSFUNCTION [None]
  - MYOPATHY [None]
  - NEUTROPHIL COUNT DECREASED [None]
  - OEDEMA [None]
  - OEDEMA PERIPHERAL [None]
  - PARAESTHESIA [None]
  - SOMNOLENCE [None]
